FAERS Safety Report 4313597-7 (Version None)
Quarter: 2004Q1

REPORT INFORMATION
  Report Type: 
  Country: None (occurrence: None)
  Receive Date: 20040304
  Receipt Date: 20040213
  Transmission Date: 20041129
  Serious: Yes (Other)
  Sender: FDA-Public Use
  Company Number: USA040259376

PATIENT
  Age: 74 Year
  Sex: Female
  Weight: 95 kg

DRUGS (6)
  1. EVISTA [Suspect]
     Indication: OSTEOPOROSIS
     Dates: start: 20031201
  2. PROTONIX [Concomitant]
  3. LASIX [Concomitant]
  4. PREDNISONE [Concomitant]
  5. SPIRONOLACTONE [Concomitant]
  6. METOPROLOL [Concomitant]

REACTIONS (4)
  - CYSTITIS [None]
  - HYPERHIDROSIS [None]
  - LOSS OF CONSCIOUSNESS [None]
  - RIB FRACTURE [None]
